FAERS Safety Report 7593528-7 (Version None)
Quarter: 2011Q3

REPORT INFORMATION
  Report Type: 
  Country: None (occurrence: None)
  Receive Date: 20110706
  Receipt Date: 20110624
  Transmission Date: 20111222
  Serious: Yes (Death)
  Sender: FDA-Public Use
  Company Number: FR-ROCHE-786906

PATIENT
  Age: 40 Year

DRUGS (1)
  1. VALIUM [Suspect]
     Route: 065

REACTIONS (1)
  - DEATH [None]
